FAERS Safety Report 6399946-7 (Version None)
Quarter: 2009Q4

REPORT INFORMATION
  Report Type: 
  Country: None (occurrence: None)
  Receive Date: 20091008
  Receipt Date: 20091008
  Transmission Date: 20100525
  Serious: Yes (Hospitalization)
  Sender: FDA-Public Use
  Company Number: None

PATIENT
  Sex: Female

DRUGS (2)
  1. TIZANIDINE HCL [Suspect]
     Indication: MUSCLE SPASMS
     Dosage: 12MG QID PO
     Route: 048
     Dates: start: 20081001, end: 20081017
  2. LIORESAL [Suspect]
     Indication: MUSCLE SPASMS
     Dosage: 20MG QID PO
     Route: 048
     Dates: start: 20081001, end: 20081017

REACTIONS (1)
  - HYPOTENSION [None]
